FAERS Safety Report 13573739 (Version 1)
Quarter: 2017Q2

REPORT INFORMATION
  Report Type: Spontaneous
  Country: US (occurrence: US)
  Receive Date: 20170522
  Receipt Date: 20170522
  Transmission Date: 20170830
  Serious: Yes (Hospitalization)
  Sender: FDA-Public Use
  Company Number: None

PATIENT
  Age: 53 Year
  Sex: Female
  Weight: 59.9 kg

DRUGS (2)
  1. PEMBROLIZUMAB 120 MG [Suspect]
     Active Substance: PEMBROLIZUMAB
     Indication: METASTATIC MALIGNANT MELANOMA
     Dosage: ONCE EVERY 21 DAYS IV
     Route: 042
     Dates: start: 20170517
  2. IBRUTINIB 560 MG [Suspect]
     Active Substance: IBRUTINIB
     Indication: METASTATIC MALIGNANT MELANOMA
     Route: 048
     Dates: start: 20170510

REACTIONS (3)
  - Rash [None]
  - Pyrexia [None]
  - Thrombocytopenia [None]

NARRATIVE: CASE EVENT DATE: 20170521
